FAERS Safety Report 15705489 (Version 1)
Quarter: 2018Q4

REPORT INFORMATION
  Report Type: Spontaneous
  Country: BR (occurrence: BR)
  Receive Date: 20181210
  Receipt Date: 20181210
  Transmission Date: 20190205
  Serious: Yes (Hospitalization, Other)
  Sender: FDA-Public Use
  Company Number: BR-SA-2018SA332074

PATIENT
  Age: 53 Year
  Sex: Female
  Weight: 56 kg

DRUGS (2)
  1. THYROGEN [Suspect]
     Active Substance: THYROTROPIN ALFA
     Indication: DIAGNOSTIC PROCEDURE
     Dosage: UNK
     Route: 048
     Dates: start: 201703
  2. PURAN [Concomitant]
     Active Substance: LEVOTHYROXINE SODIUM
     Indication: HYPOTHYROIDISM
     Dosage: 1 DF, QD
     Route: 048
     Dates: start: 1986

REACTIONS (4)
  - Incorrect route of product administration [Unknown]
  - Atrial fibrillation [Unknown]
  - Heart rate irregular [Unknown]
  - Malaise [Unknown]

NARRATIVE: CASE EVENT DATE: 2017
